FAERS Safety Report 20848814 (Version 1)
Quarter: 2022Q2

REPORT INFORMATION
  Report Type: Spontaneous
  Country: AU (occurrence: AU)
  Receive Date: 20220519
  Receipt Date: 20220519
  Transmission Date: 20220721
  Serious: Yes (Other)
  Sender: FDA-Public Use
  Company Number: AU-SA-SAC20220517001455

PATIENT
  Age: 49 Year
  Sex: Female

DRUGS (15)
  1. FEXOFENADINE [Suspect]
     Active Substance: FEXOFENADINE HYDROCHLORIDE
     Indication: Product used for unknown indication
     Dosage: UNK
     Route: 065
  2. METHOTREXATE [Suspect]
     Active Substance: METHOTREXATE
     Indication: Cryoglobulinaemia
     Dosage: 15 MG
     Route: 048
  3. METHOTREXATE [Suspect]
     Active Substance: METHOTREXATE
     Dosage: 20 MG
     Route: 058
     Dates: start: 20190621, end: 20190809
  4. LEFLUNOMIDE [Suspect]
     Active Substance: LEFLUNOMIDE
     Indication: Product used for unknown indication
     Dosage: 20 MG
     Route: 065
     Dates: start: 20190906, end: 20200227
  5. LEFLUNOMIDE [Suspect]
     Active Substance: LEFLUNOMIDE
     Dosage: 10 MG, QD
     Route: 048
     Dates: start: 20200227, end: 20200527
  6. MYCOPHENOLATE MOFETIL [Suspect]
     Active Substance: MYCOPHENOLATE MOFETIL
     Indication: Cryoglobulinaemia
     Dosage: 1 G, BID
     Route: 065
     Dates: start: 20200602, end: 20210222
  7. MYCOPHENOLATE MOFETIL [Suspect]
     Active Substance: MYCOPHENOLATE MOFETIL
     Dosage: 500 MG, QD
     Route: 065
     Dates: start: 20210309, end: 202108
  8. MYCOPHENOLATE MOFETIL [Suspect]
     Active Substance: MYCOPHENOLATE MOFETIL
     Dosage: 500 MG, BID
     Route: 065
     Dates: start: 202108, end: 20211014
  9. MYCOPHENOLATE MOFETIL [Suspect]
     Active Substance: MYCOPHENOLATE MOFETIL
     Dosage: 250 MG, TID
     Route: 065
     Dates: start: 20211014
  10. FLAREX [Suspect]
     Active Substance: FLUOROMETHOLONE ACETATE
     Dosage: UNK
     Route: 065
     Dates: start: 20200522
  11. PATANOL [Suspect]
     Active Substance: OLOPATADINE HYDROCHLORIDE
     Indication: Cryoglobulinaemia
     Dosage: UNK
     Route: 065
  12. CETRIMONIUM BROMIDE [Suspect]
     Active Substance: CETRIMONIUM BROMIDE
     Indication: Product used for unknown indication
     Dosage: UNK
     Route: 065
  13. ENDEP [Suspect]
     Active Substance: AMITRIPTYLINE HYDROCHLORIDE
     Indication: Product used for unknown indication
     Dosage: UNK
     Route: 065
  14. MORPHINE SULFATE [Suspect]
     Active Substance: MORPHINE SULFATE
     Indication: Product used for unknown indication
     Dosage: UNK
     Route: 065
  15. HYDROXYCHLOROQUINE SULFATE [Concomitant]
     Active Substance: HYDROXYCHLOROQUINE SULFATE
     Dosage: UNK
     Route: 065

REACTIONS (22)
  - Urticarial vasculitis [Unknown]
  - Polyneuropathy [Unknown]
  - Apathy [Unknown]
  - Arthralgia [Unknown]
  - Asthenia [Unknown]
  - Burning feet syndrome [Unknown]
  - Confusional state [Unknown]
  - Conjunctivitis [Unknown]
  - Dermatitis contact [Unknown]
  - Diarrhoea [Recovered/Resolved]
  - Feeling abnormal [Unknown]
  - Haematuria [Unknown]
  - Hypertension [Unknown]
  - Hypohidrosis [Unknown]
  - Nausea [Unknown]
  - Pain [Unknown]
  - Paraesthesia [Unknown]
  - Pharyngeal swelling [Unknown]
  - Rhinorrhoea [Unknown]
  - Urticaria [Recovered/Resolved]
  - Urticaria aquagenic [Unknown]
  - Urticaria cholinergic [Unknown]

NARRATIVE: CASE EVENT DATE: 20210222
